FAERS Safety Report 10762289 (Version 1)
Quarter: 2015Q1

REPORT INFORMATION
  Report Type: Spontaneous
  Country: US (occurrence: None)
  Receive Date: 20150128
  Receipt Date: 20150128
  Transmission Date: 20150721
  Serious: Yes (Other)
  Sender: FDA-Public Use
  Company Number: 1386167

PATIENT
  Sex: Female

DRUGS (4)
  1. SOLU-MEDROL (METHYLPREDNISONE SODIUM SUCCINATE) [Concomitant]
  2. CLARITIN [Concomitant]
     Active Substance: LORATADINE
  3. RITUXAN [Suspect]
     Active Substance: RITUXIMAB
     Indication: PRODUCT USED FOR UNKNOWN INDICATION
     Dates: start: 20140407
  4. TYLENOL [Concomitant]
     Active Substance: ACETAMINOPHEN

REACTIONS (6)
  - Pruritus [None]
  - Urticaria [None]
  - Oropharyngeal discomfort [None]
  - Blood pressure increased [None]
  - Erythema [None]
  - Dyspnoea [None]
